FAERS Safety Report 16157156 (Version 2)
Quarter: 2019Q2

REPORT INFORMATION
  Report Type: Spontaneous
  Country: US (occurrence: US)
  Receive Date: 20190404
  Receipt Date: 20190619
  Transmission Date: 20190711
  Serious: No
  Sender: FDA-Public Use
  Company Number: US-MYLANLABS-2019M1025167

PATIENT
  Sex: Female
  Weight: 102 kg

DRUGS (1)
  1. GLATIRAMER ACETATE INJECTION [Suspect]
     Active Substance: GLATIRAMER ACETATE
     Indication: PRODUCT USED FOR UNKNOWN INDICATION
     Dosage: 40 MILLIGRAM
     Route: 058

REACTIONS (4)
  - Product packaging issue [Recovered/Resolved]
  - Injection site haematoma [Unknown]
  - Needle issue [Recovered/Resolved]
  - Incorrect dose administered [Recovered/Resolved]
